FAERS Safety Report 8422073-1 (Version None)
Quarter: 2012Q2

REPORT INFORMATION
  Report Type: 
  Country: None (occurrence: None)
  Receive Date: 20120608
  Receipt Date: 20120601
  Transmission Date: 20120825
  Serious: Yes (Other)
  Sender: FDA-Public Use
  Company Number: NL-PFIZER INC-2012133247

PATIENT
  Age: 74 Year
  Sex: Male

DRUGS (3)
  1. MICARDIS [Concomitant]
     Dosage: UNK
  2. LIPITOR [Suspect]
     Dosage: UNK
  3. SELOKEEN [Concomitant]
     Dosage: UNK

REACTIONS (4)
  - SWELLING FACE [None]
  - RASH MACULAR [None]
  - SWELLING [None]
  - DYSPNOEA [None]
